FAERS Safety Report 5455098-9 (Version None)
Quarter: 2007Q3

REPORT INFORMATION
  Report Type: 
  Country: None (occurrence: None)
  Receive Date: 20070913
  Receipt Date: 20070913
  Transmission Date: 20080115
  Serious: Yes (Other)
  Sender: FDA-Public Use
  Company Number: None

PATIENT
  Age: 17 Year
  Sex: Male
  Weight: 77.1115 kg

DRUGS (2)
  1. ZMA ZINC MAGNESIUM ASPARTATE GNC [Suspect]
     Indication: BLOOD TESTOSTERONE DECREASED
     Dosage: 2 PILLS ONCE A NIGHT PO
     Route: 048
     Dates: start: 20070815, end: 20070820
  2. ZMA ZINC MAGNESIUM ASPARTATE GNC [Suspect]
     Indication: INSOMNIA
     Dosage: 2 PILLS ONCE A NIGHT PO
     Route: 048
     Dates: start: 20070815, end: 20070820

REACTIONS (5)
  - DIZZINESS [None]
  - FEELING ABNORMAL [None]
  - INSOMNIA [None]
  - NAUSEA [None]
  - PAIN [None]
